FAERS Safety Report 9240983 (Version 1)
Quarter: 2013Q1

REPORT INFORMATION
  Report Type: Spontaneous
  Country: US (occurrence: None)
  Receive Date: 20121120
  Receipt Date: 20121120
  Transmission Date: 20140127
  Serious: No
  Sender: FDA-Public Use
  Company Number: 1000039313

PATIENT
  Age: 74 Year
  Sex: Female

DRUGS (4)
  1. VIIBRYD [Suspect]
     Indication: DEPRESSION
     Route: 048
     Dates: start: 20120915, end: 20120917
  2. VIIBRYD [Suspect]
     Indication: DEPRESSION
     Route: 048
     Dates: start: 20121001
  3. DICYCLOMINE (DICYCLOMINE) (DICYCLOMINE) [Concomitant]
  4. XANAX (ALPRAZOLAM) (0.5 MILLIGRAM) (ALPRAZOLAM) [Concomitant]

REACTIONS (6)
  - Swelling face [None]
  - Pollakiuria [None]
  - Dysuria [None]
  - Diarrhoea [None]
  - Anorectal disorder [None]
  - Pain in extremity [None]
